FAERS Safety Report 13240244 (Version 1)
Quarter: 2017Q1

REPORT INFORMATION
  Report Type: Spontaneous
  Country: US (occurrence: US)
  Receive Date: 20170216
  Receipt Date: 20170216
  Transmission Date: 20170428
  Serious: No
  Sender: FDA-Public Use
  Company Number: US-RELYPSA-RLY2016003916

PATIENT
  Sex: Male

DRUGS (5)
  1. CARVEDIOL [Concomitant]
     Active Substance: CARVEDILOL
  2. PRAVASTATIN. [Concomitant]
     Active Substance: PRAVASTATIN
  3. VELTASSA [Suspect]
     Active Substance: PATIROMER
     Indication: HYPERKALAEMIA
     Dosage: 8.4 G, QD
     Route: 048
  4. METFORMIN [Concomitant]
     Active Substance: METFORMIN HYDROCHLORIDE
  5. ELIQUIS [Concomitant]
     Active Substance: APIXABAN

REACTIONS (2)
  - Diarrhoea [Recovered/Resolved]
  - Abdominal discomfort [Recovered/Resolved]

NARRATIVE: CASE EVENT DATE: 2016
